FAERS Safety Report 11701005 (Version 1)
Quarter: 2015Q4

REPORT INFORMATION
  Report Type: Spontaneous
  Country: NL (occurrence: NL)
  Receive Date: 20151105
  Receipt Date: 20151105
  Transmission Date: 20160304
  Serious: Yes (Hospitalization)
  Sender: FDA-Public Use
  Company Number: NL-ACTELION-A-CH2015-125930

PATIENT
  Age: 52 Year
  Sex: Female

DRUGS (8)
  1. SPIRONOLACTON [Concomitant]
     Active Substance: SPIRONOLACTONE
  2. VELETRI [Suspect]
     Active Substance: EPOPROSTENOL
     Dosage: UNK
     Route: 042
     Dates: start: 20150123, end: 20150902
  3. VELETRI [Suspect]
     Active Substance: EPOPROSTENOL
     Dosage: UNK
     Route: 042
     Dates: start: 20151011
  4. ADCIRCA [Concomitant]
     Active Substance: TADALAFIL
  5. VELETRI [Suspect]
     Active Substance: EPOPROSTENOL
     Indication: PULMONARY HYPERTENSION
     Dosage: UNK
     Route: 042
     Dates: start: 20150902, end: 20151011
  6. TRACLEER [Suspect]
     Active Substance: BOSENTAN
     Indication: PULMONARY HYPERTENSION
     Route: 048
  7. FUROSEMIDE. [Concomitant]
     Active Substance: FUROSEMIDE
  8. FENPROCOUMON [Concomitant]
     Active Substance: PHENPROCOUMON

REACTIONS (2)
  - Device occlusion [Unknown]
  - Medical device complication [Unknown]

NARRATIVE: CASE EVENT DATE: 20151011
